FAERS Safety Report 5420129-9 (Version None)
Quarter: 2007Q3

REPORT INFORMATION
  Report Type: 
  Country: None (occurrence: None)
  Receive Date: 20070815
  Receipt Date: 20070810
  Transmission Date: 20080115
  Serious: Yes (Death, Hospitalization)
  Sender: FDA-Public Use
  Company Number: TIF2007A00049

PATIENT
  Age: 79 Year
  Sex: Male

DRUGS (8)
  1. LIMPIDEX (LANSOPRAZOLE) (CAPSULES) [Suspect]
     Indication: PROPHYLAXIS AGAINST GASTROINTESTINAL ULCER
     Dosage: 30 MG (30 MG, 1 IN 1 D) ORAL
     Route: 048
     Dates: start: 20070307, end: 20070410
  2. ALLOPURINOL [Suspect]
     Indication: HYPERURICAEMIA
     Dosage: 300 MG (300 MG, 1 IN 1 D) ORAL
     Route: 048
     Dates: start: 20070307, end: 20070410
  3. LASIX [Concomitant]
  4. COUMADIN [Concomitant]
  5. ENAPREN (ENALAPRIL MALEATE) [Concomitant]
  6. KANRENOL (POTASSIUM CANRENOATE) [Concomitant]
  7. LANOXIN [Concomitant]
  8. AMIODAR (AMIODARONE HYDROCHLORIDE) [Concomitant]

REACTIONS (6)
  - CARDIAC FAILURE [None]
  - MULTI-ORGAN FAILURE [None]
  - RENAL FAILURE ACUTE [None]
  - RESPIRATORY FAILURE [None]
  - STEVENS-JOHNSON SYNDROME [None]
  - TOXIC SKIN ERUPTION [None]
